FAERS Safety Report 23340393 (Version 1)
Quarter: 2023Q4

REPORT INFORMATION
  Report Type: Spontaneous
  Country: CH (occurrence: CH)
  Receive Date: 20231227
  Receipt Date: 20231227
  Transmission Date: 20240109
  Serious: Yes (Hospitalization, Other)
  Sender: FDA-Public Use
  Company Number: None

PATIENT

DRUGS (3)
  1. INFLECTRA [Suspect]
     Active Substance: INFLIXIMAB-DYYB
     Indication: Crohn^s disease
     Dosage: 1ST ADMINISTRATION
     Route: 042
     Dates: start: 20231004, end: 20231004
  2. INFLECTRA [Suspect]
     Active Substance: INFLIXIMAB-DYYB
     Dosage: 2ND ADMINISTRATION
     Route: 042
     Dates: start: 20231019, end: 20231019
  3. INFLECTRA [Suspect]
     Active Substance: INFLIXIMAB-DYYB
     Dosage: 3RD ADMINISTRATION (FIRST ON 04OCT2023, SECOND ON 19OCT2023); IN TOTAL
     Route: 042
     Dates: start: 20231115, end: 20231115

REACTIONS (4)
  - Hypoxia [Recovered/Resolved]
  - Dysphonia [Recovered/Resolved]
  - Rash pruritic [Recovered/Resolved]
  - Laryngeal oedema [Recovered/Resolved]

NARRATIVE: CASE EVENT DATE: 20231115
